FAERS Safety Report 6128100-9 (Version None)
Quarter: 2009Q1

REPORT INFORMATION
  Report Type: 
  Country: None (occurrence: None)
  Receive Date: 20090323
  Receipt Date: 20081209
  Transmission Date: 20090719
  Serious: Yes (Hospitalization)
  Sender: FDA-Public Use
  Company Number: US-BRISTOL-MYERS SQUIBB COMPANY-14440085

PATIENT
  Age: 60 Year
  Sex: Female
  Weight: 46 kg

DRUGS (5)
  1. CETUXIMAB [Suspect]
     Indication: NON-SMALL CELL LUNG CANCER
     Dosage: 30SEP08-18NOV08
     Route: 042
     Dates: start: 20080930, end: 20081118
  2. PACLITAXEL [Suspect]
     Indication: NON-SMALL CELL LUNG CANCER
     Dosage: 30SEP08-11NOV08
     Route: 042
     Dates: start: 20080930, end: 20081111
  3. CARBOPLATIN [Suspect]
     Indication: NON-SMALL CELL LUNG CANCER
     Dosage: 30SEP08-11NOV08
     Route: 042
     Dates: start: 20080930, end: 20081111
  4. BEVACIZUMAB [Suspect]
     Indication: NON-SMALL CELL LUNG CANCER
     Dosage: 7OCT08-4NOV08
     Route: 042
     Dates: start: 20081104, end: 20081104
  5. ASPIRIN [Concomitant]
     Dates: start: 20081125

REACTIONS (4)
  - ANAEMIA [None]
  - DEEP VEIN THROMBOSIS [None]
  - PULMONARY EMBOLISM [None]
  - THROMBOCYTOPENIA [None]
